FAERS Safety Report 19747154 (Version 26)
Quarter: 2024Q2

REPORT INFORMATION
  Report Type: Spontaneous
  Country: CA (occurrence: CA)
  Receive Date: 20210826
  Receipt Date: 20240426
  Transmission Date: 20240716
  Serious: Yes (Hospitalization, Other)
  Sender: FDA-Public Use
  Company Number: CA-CELLTRION INC.-2021CA011657

PATIENT

DRUGS (41)
  1. INFLECTRA [Suspect]
     Active Substance: INFLIXIMAB-DYYB
     Indication: Crohn^s disease
     Dosage: 590 MG, 0, 2, 6, THEN EVERY 8 WEEKS
     Route: 042
     Dates: start: 20210625
  2. INFLECTRA [Suspect]
     Active Substance: INFLIXIMAB-DYYB
     Dosage: 590 MG, EVERY 8 WEEKS
     Route: 041
     Dates: start: 20210709
  3. INFLECTRA [Suspect]
     Active Substance: INFLIXIMAB-DYYB
     Dosage: 590 MG, WEEK 0, 2, 6, THEN EVERY 8 WEEKS
     Route: 041
     Dates: start: 20210806
  4. INFLECTRA [Suspect]
     Active Substance: INFLIXIMAB-DYYB
     Dosage: 590 MG, WEEK 0, 2, 6, THEN EVERY 8 WEEKS
     Route: 041
     Dates: start: 20210806
  5. INFLECTRA [Suspect]
     Active Substance: INFLIXIMAB-DYYB
     Dosage: 590 MG, WEEK 0, 2, 6, THEN EVERY 8 WEEKS
     Route: 041
     Dates: start: 20210806
  6. INFLECTRA [Suspect]
     Active Substance: INFLIXIMAB-DYYB
     Dosage: 590 MG, WEEK 0, 2, 6, THEN EVERY 8 WEEKS
     Route: 041
     Dates: start: 20210930
  7. INFLECTRA [Suspect]
     Active Substance: INFLIXIMAB-DYYB
     Dosage: 590 MG, WEEK 0, 2, 6, THEN EVERY 8 WEEKS
     Route: 041
     Dates: start: 20211126
  8. INFLECTRA [Suspect]
     Active Substance: INFLIXIMAB-DYYB
     Dosage: 590 MG, WEEK 0, 2, 6, THEN EVERY 8 WEEKS
     Route: 041
     Dates: start: 20220121
  9. INFLECTRA [Suspect]
     Active Substance: INFLIXIMAB-DYYB
     Dosage: 590 MG, WEEK 0, 2, 6, THEN EVERY 8 WEEKS
     Route: 041
     Dates: start: 20220407
  10. INFLECTRA [Suspect]
     Active Substance: INFLIXIMAB-DYYB
     Dosage: 590 MG, SUPPOSED TO RECEIVE 5 MG/KG, EVERY 8 WEEKS
     Route: 042
     Dates: start: 20220602
  11. INFLECTRA [Suspect]
     Active Substance: INFLIXIMAB-DYYB
     Dosage: 590 MG, SUPPOSED TO RECEIVE 5 MG/KG, EVERY 8 WEEKS
     Route: 042
     Dates: start: 20220728
  12. INFLECTRA [Suspect]
     Active Substance: INFLIXIMAB-DYYB
     Dosage: 5 MG/KG, EVERY 8 WEEKS
     Route: 042
     Dates: start: 20220922
  13. INFLECTRA [Suspect]
     Active Substance: INFLIXIMAB-DYYB
     Dosage: 5 MG/KG, EVERY 8 WEEKS
     Route: 042
     Dates: start: 20230113
  14. INFLECTRA [Suspect]
     Active Substance: INFLIXIMAB-DYYB
     Dosage: 585 MG, EVERY 8 WEEKS
     Route: 042
     Dates: start: 20230308
  15. INFLECTRA [Suspect]
     Active Substance: INFLIXIMAB-DYYB
     Dosage: 590 MG, EVERY 8 WEEKS
     Route: 042
     Dates: start: 20230501
  16. INFLECTRA [Suspect]
     Active Substance: INFLIXIMAB-DYYB
     Dosage: 590 MG, EVERY 8 WEEKS
     Route: 042
     Dates: start: 20230501
  17. INFLECTRA [Suspect]
     Active Substance: INFLIXIMAB-DYYB
     Dosage: 600 MG, EVERY 8 WEEKS
     Route: 042
     Dates: start: 20230628
  18. INFLECTRA [Suspect]
     Active Substance: INFLIXIMAB-DYYB
     Dosage: 590 MG, EVERY 8 WEEKS
     Route: 042
     Dates: start: 20230823
  19. INFLECTRA [Suspect]
     Active Substance: INFLIXIMAB-DYYB
     Dosage: 600 MG (5 MG/KG), EVERY 8 WEEKS
     Route: 042
     Dates: start: 20231018
  20. INFLECTRA [Suspect]
     Active Substance: INFLIXIMAB-DYYB
     Dosage: 555 MG (5 MG/KG), EVERY 8 WEEKS
     Route: 042
     Dates: start: 20231213
  21. INFLECTRA [Suspect]
     Active Substance: INFLIXIMAB-DYYB
     Dosage: 5 MG/KG, AFTER 6 WEEKS AND 2 DAYS (PRESCRIBED EVERY 6 WEEKS)
     Route: 042
     Dates: start: 20240126
  22. INFLECTRA [Suspect]
     Active Substance: INFLIXIMAB-DYYB
     Dosage: 5 MG/KG (560 MG), AFTER 5 WEEKS 5 DAYS (PRESCRIBED EVERY 6 WEEKS)
     Route: 042
     Dates: start: 20240306
  23. INFLECTRA [Suspect]
     Active Substance: INFLIXIMAB-DYYB
     Dosage: 5 MG/KG (555 MG), EVERY 6 WEEKS
     Route: 042
     Dates: start: 20240417
  24. ALLOPURINOL [Concomitant]
     Active Substance: ALLOPURINOL
     Dosage: 1 DF, MORE DOSAGE INFO: NOT PROVIDED
     Route: 065
     Dates: start: 2021
  25. AMLODIPINE [Concomitant]
     Active Substance: AMLODIPINE BESYLATE
     Dosage: UNK
  26. ASPIRIN [Concomitant]
     Active Substance: ASPIRIN
     Dosage: UNK
  27. ATENOLOL [Concomitant]
     Active Substance: ATENOLOL
     Dosage: UNK
  28. ATENOLOL [Concomitant]
     Active Substance: ATENOLOL
     Dosage: UNK
  29. AZATHIOPRINE [Concomitant]
     Active Substance: AZATHIOPRINE
     Dosage: UNK
  30. AZATHIOPRINE [Concomitant]
     Active Substance: AZATHIOPRINE
     Dosage: 50 MG
     Route: 065
     Dates: start: 2019
  31. BUDESONIDE [Concomitant]
     Active Substance: BUDESONIDE
     Dosage: UNK
  32. BUPROPION [Concomitant]
     Active Substance: BUPROPION
     Dosage: UNK
  33. CANDESARTAN [Concomitant]
     Active Substance: CANDESARTAN
     Dosage: UNK
  34. CHLORTHALIDONE [Concomitant]
     Active Substance: CHLORTHALIDONE
     Dosage: UNK
  35. COLCHICINE [Concomitant]
     Active Substance: COLCHICINE
     Dosage: UNK
  36. EMPAGLIFLOZIN [Concomitant]
     Active Substance: EMPAGLIFLOZIN
     Dosage: UNK
  37. IMURAN [Concomitant]
     Active Substance: AZATHIOPRINE
     Dosage: 50 MG, FREQUENCY: NOT PROVIDED
     Route: 065
     Dates: start: 2019
  38. METFORMIN [Concomitant]
     Active Substance: METFORMIN HYDROCHLORIDE
     Indication: Diabetes mellitus
     Dosage: 1 DF
     Dates: start: 2021
  39. PREGABALIN [Concomitant]
     Active Substance: PREGABALIN
     Dosage: UNK
  40. HERBALS\TURMERIC [Concomitant]
     Active Substance: HERBALS\TURMERIC
     Dosage: UNK
  41. VITAMIN D NOS [Concomitant]
     Active Substance: VITAMIN D NOS
     Dosage: UNK

REACTIONS (22)
  - Pancreatitis [Recovering/Resolving]
  - Rectal haemorrhage [Recovered/Resolved]
  - Lower respiratory tract infection [Recovering/Resolving]
  - Cardiac disorder [Recovering/Resolving]
  - Nasopharyngitis [Unknown]
  - Therapeutic response shortened [Unknown]
  - Condition aggravated [Recovering/Resolving]
  - Drug level below therapeutic [Unknown]
  - Nasal congestion [Recovered/Resolved]
  - Arthralgia [Not Recovered/Not Resolved]
  - COVID-19 [Recovered/Resolved]
  - Cough [Recovered/Resolved]
  - Mobility decreased [Not Recovered/Not Resolved]
  - Gouty arthritis [Not Recovered/Not Resolved]
  - Infrequent bowel movements [Unknown]
  - Memory impairment [Unknown]
  - Weight decreased [Not Recovered/Not Resolved]
  - Anal fissure [Recovered/Resolved]
  - Off label use [Unknown]
  - Off label use [Unknown]
  - Intentional product use issue [Unknown]
  - Inappropriate schedule of product administration [Unknown]

NARRATIVE: CASE EVENT DATE: 20210801
